FAERS Safety Report 7292474-6 (Version None)
Quarter: 2011Q1

REPORT INFORMATION
  Report Type: 
  Country: None (occurrence: None)
  Receive Date: 20110215
  Receipt Date: 20110211
  Transmission Date: 20110831
  Serious: Yes (Other)
  Sender: FDA-Public Use
  Company Number: US-PFIZER INC-2011031594

PATIENT
  Sex: Female

DRUGS (2)
  1. ADVIL [Suspect]
     Indication: JOINT SWELLING
     Dosage: 200 MG, UNK
     Route: 048
     Dates: start: 20110101, end: 20110210
  2. ACETYLSALICYLIC ACID SRT [Suspect]
     Dosage: UNK

REACTIONS (1)
  - ANAPHYLACTIC REACTION [None]
